FAERS Safety Report 7339474-5 (Version None)
Quarter: 2011Q1

REPORT INFORMATION
  Report Type: 
  Country: None (occurrence: None)
  Receive Date: 20110308
  Receipt Date: 20110111
  Transmission Date: 20110831
  Serious: No
  Sender: FDA-Public Use
  Company Number: US-AMGEN-USASP2010009930

PATIENT
  Age: 69 Year
  Sex: Female
  Weight: 82.54 kg

DRUGS (5)
  1. PROLIA [Suspect]
     Indication: OSTEOPOROSIS POSTMENOPAUSAL
     Dosage: 60 MG, Q6MO
     Dates: start: 20101202
  2. ZOLOFT [Concomitant]
     Dosage: 100 MG, QD
  3. PRILOSEC [Concomitant]
     Dosage: 20 MG, QD
  4. VITAMIN A [Concomitant]
     Dosage: 50000 IU, QWK
  5. CALCIUM [Concomitant]

REACTIONS (6)
  - NECK PAIN [None]
  - BACK PAIN [None]
  - PAIN IN EXTREMITY [None]
  - MYALGIA [None]
  - PAIN [None]
  - ARTHRALGIA [None]
